FAERS Safety Report 5195917-7 (Version None)
Quarter: 2006Q4

REPORT INFORMATION
  Report Type: 
  Country: None (occurrence: None)
  Receive Date: 20061227
  Receipt Date: 20061227
  Transmission Date: 20070319
  Serious: Yes (Death, Life-Threatening)
  Sender: FDA-Public Use
  Company Number: None

PATIENT
  Age: 30 Year
  Sex: Female
  Weight: 61.2356 kg

DRUGS (1)
  1. HALOPERDOL [Suspect]
     Dates: start: 20061118, end: 20061122

REACTIONS (8)
  - BLOOD CREATINE PHOSPHOKINASE INCREASED [None]
  - HEART RATE IRREGULAR [None]
  - MUSCLE RIGIDITY [None]
  - MYOGLOBINURIA [None]
  - RASH [None]
  - RENAL FAILURE [None]
  - SKIN LESION [None]
  - SWELLING [None]
